FAERS Safety Report 13563489 (Version 1)
Quarter: 2017Q2

REPORT INFORMATION
  Report Type: Spontaneous
  Country: US (occurrence: US)
  Receive Date: 20170519
  Receipt Date: 20170519
  Transmission Date: 20170830
  Serious: Yes (Other)
  Sender: FDA-Public Use
  Company Number: US-ELI_LILLY_AND_COMPANY-US201705005237

PATIENT
  Age: 87 Year
  Sex: Female

DRUGS (3)
  1. AMBRISENTAN [Suspect]
     Active Substance: AMBRISENTAN
     Indication: PULMONARY HYPERTENSION
     Dosage: 10 MG, DAILY
     Route: 065
     Dates: start: 20170301
  2. SILDENAFIL. [Suspect]
     Active Substance: SILDENAFIL
     Indication: PRODUCT USED FOR UNKNOWN INDICATION
     Dosage: UNK, UNKNOWN
     Route: 065
  3. ADCIRCA [Suspect]
     Active Substance: TADALAFIL
     Indication: PULMONARY HYPERTENSION
     Dosage: UNK, UNKNOWN
     Route: 065

REACTIONS (1)
  - Haemorrhagic anaemia [Unknown]

NARRATIVE: CASE EVENT DATE: 20170501
